FAERS Safety Report 21579744 (Version 1)
Quarter: 2022Q4

REPORT INFORMATION
  Report Type: Spontaneous
  Country: US (occurrence: US)
  Receive Date: 20221110
  Receipt Date: 20221110
  Transmission Date: 20230113
  Serious: No
  Sender: FDA-Public Use
  Company Number: US-LUNDBECK-DKLU3054042

PATIENT
  Age: 48 Year
  Sex: Female

DRUGS (5)
  1. NORTHERA [Suspect]
     Active Substance: DROXIDOPA
     Indication: Autonomic nervous system imbalance
     Route: 065
     Dates: start: 20190313
  2. NORTHERA [Suspect]
     Active Substance: DROXIDOPA
     Indication: Orthostatic hypotension
  3. NORTHERA [Suspect]
     Active Substance: DROXIDOPA
     Indication: Autonomic neuropathy
  4. NORTHERA [Suspect]
     Active Substance: DROXIDOPA
     Indication: Dizziness
  5. KETAMINE [Suspect]
     Active Substance: KETAMINE
     Indication: Pain
     Route: 042

REACTIONS (3)
  - Endodontic procedure [Unknown]
  - Headache [Unknown]
  - Labile blood pressure [Unknown]
